FAERS Safety Report 15747155 (Version 1)
Quarter: 2018Q4

REPORT INFORMATION
  Report Type: Spontaneous
  Country: US (occurrence: US)
  Receive Date: 20181220
  Receipt Date: 20181220
  Transmission Date: 20190205
  Serious: No
  Sender: FDA-Public Use
  Company Number: US-IMPAX LABORATORIES, LLC-2018-IPXL-02106

PATIENT
  Age: 90 Year
  Sex: Male
  Weight: 87 kg

DRUGS (1)
  1. OXYBUTYNIN CHLORIDE ER [Suspect]
     Active Substance: OXYBUTYNIN CHLORIDE
     Indication: URINARY INCONTINENCE
     Dosage: 10 MG, QD
     Route: 048
     Dates: start: 2017

REACTIONS (1)
  - Drug ineffective [Not Recovered/Not Resolved]
